FAERS Safety Report 13472530 (Version 1)
Quarter: 2017Q2

REPORT INFORMATION
  Report Type: Spontaneous
  Country: US (occurrence: US)
  Receive Date: 20170424
  Receipt Date: 20170424
  Transmission Date: 20170830
  Serious: Yes (Other)
  Sender: FDA-Public Use
  Company Number: US-SA-2017SA070908

PATIENT
  Age: 63 Year
  Sex: Female

DRUGS (5)
  1. XYZAL ALLERGY 24HR [Suspect]
     Active Substance: LEVOCETIRIZINE DIHYDROCHLORIDE
     Indication: MULTIPLE ALLERGIES
     Route: 065
     Dates: start: 20170401, end: 20170413
  2. BISACODYL. [Concomitant]
     Active Substance: BISACODYL
     Indication: CONSTIPATION
     Dosage: APPROXIMATELY ONCE A MONTH
     Route: 065
  3. BISACODYL. [Concomitant]
     Active Substance: BISACODYL
     Indication: HAEMORRHOIDS
     Dosage: APPROXIMATELY ONCE A MONTH
     Route: 065
  4. LISINOPRIL. [Concomitant]
     Active Substance: LISINOPRIL
     Indication: HYPERTENSION
     Route: 065
  5. FUROSEMIDE. [Concomitant]
     Active Substance: FUROSEMIDE
     Indication: SWELLING
     Route: 065

REACTIONS (7)
  - Vomiting [Unknown]
  - Abdominal distension [Unknown]
  - Hyperhidrosis [Unknown]
  - Palpitations [Unknown]
  - Rectal haemorrhage [Unknown]
  - Constipation [Unknown]
  - Abdominal discomfort [Unknown]
